FAERS Safety Report 6876950-3 (Version None)
Quarter: 2010Q3

REPORT INFORMATION
  Report Type: 
  Country: None (occurrence: None)
  Receive Date: 20100727
  Receipt Date: 20100720
  Transmission Date: 20110219
  Serious: Yes (Life-Threatening, Other)
  Sender: FDA-Public Use
  Company Number: IT-ASTRAZENECA-2010SE33727

PATIENT
  Age: 14 Year
  Sex: Male

DRUGS (2)
  1. PROPOFOL [Suspect]
     Indication: INDUCTION OF ANAESTHESIA
  2. ATRACURIUM BESYLATE [Suspect]
     Indication: INDUCTION OF ANAESTHESIA

REACTIONS (2)
  - CARDIAC ARREST [None]
  - SINUS BRADYCARDIA [None]
